FAERS Safety Report 6060563-X (Version None)
Quarter: 2009Q1

REPORT INFORMATION
  Report Type: 
  Country: None (occurrence: None)
  Receive Date: 20090202
  Receipt Date: 20090123
  Transmission Date: 20090719
  Serious: Yes (Other)
  Sender: FDA-Public Use
  Company Number: JP-ALLERGAN-0901079US

PATIENT

DRUGS (4)
  1. ALESION TABLET [Suspect]
     Indication: PRURITUS
     Dosage: 20 MG, QD
     Route: 048
     Dates: start: 20090115, end: 20090120
  2. GASTER [Suspect]
     Route: 048
     Dates: end: 20090115
  3. GASMOTIN [Suspect]
     Route: 048
     Dates: start: 20090120
  4. SULPERAZON [Suspect]

REACTIONS (1)
  - PLATELET COUNT DECREASED [None]
